FAERS Safety Report 7138904-1 (Version None)
Quarter: 2010Q4

REPORT INFORMATION
  Report Type: 
  Country: None (occurrence: None)
  Receive Date: 20101206
  Receipt Date: 20101008
  Transmission Date: 20110411
  Serious: No
  Sender: FDA-Public Use
  Company Number: US-ABBOTT-10P-163-0656343-00

PATIENT
  Age: 5 Month
  Sex: Male

DRUGS (2)
  1. CEFDINIR [Suspect]
     Indication: OTITIS MEDIA
     Route: 048
  2. IRON [Interacting]
     Indication: PRODUCT USED FOR UNKNOWN INDICATION

REACTIONS (2)
  - DRUG INTERACTION [None]
  - FAECES DISCOLOURED [None]
